FAERS Safety Report 11952612 (Version 1)
Quarter: 2016Q1

REPORT INFORMATION
  Report Type: Report from Study
  Country: NL (occurrence: NL)
  Receive Date: 20160125
  Receipt Date: 20160125
  Transmission Date: 20160526
  Serious: Yes (Other)
  Sender: FDA-Public Use
  Company Number: NL-BAXALTA-2016BLT000202

PATIENT
  Age: 63 Year
  Sex: Female

DRUGS (6)
  1. KIOVIG [Suspect]
     Active Substance: HUMAN IMMUNOGLOBULIN G
     Dosage: UNK UNK, EVERY 4 WK
     Dates: start: 20091111
  2. KIOVIG [Suspect]
     Active Substance: HUMAN IMMUNOGLOBULIN G
     Indication: GUILLAIN-BARRE SYNDROME
     Dosage: UNK UNK, EVERY 4 WK
     Route: 065
     Dates: start: 20091111
  3. KIOVIG [Suspect]
     Active Substance: HUMAN IMMUNOGLOBULIN G
     Dosage: UNK
     Route: 042
     Dates: start: 20160113
  4. KIOVIG [Suspect]
     Active Substance: HUMAN IMMUNOGLOBULIN G
     Indication: GUILLAIN-BARRE SYNDROME
     Dosage: UNK UNK, EVERY 4 WK
     Route: 042
     Dates: start: 20151216
  5. KIOVIG [Suspect]
     Active Substance: HUMAN IMMUNOGLOBULIN G
     Dosage: UNK
     Route: 042
     Dates: start: 20091111
  6. KIOVIG [Suspect]
     Active Substance: HUMAN IMMUNOGLOBULIN G
     Dosage: UNK UNK, EVERY 4 WK
     Route: 042
     Dates: start: 20091111

REACTIONS (2)
  - Pneumonia [Recovered/Resolved]
  - Cystitis noninfective [Recovered/Resolved]

NARRATIVE: CASE EVENT DATE: 20160104
